FAERS Safety Report 9907650 (Version 6)
Quarter: 2015Q4

REPORT INFORMATION
  Report Type: Report from Study
  Country: US (occurrence: US)
  Receive Date: 20140219
  Receipt Date: 20151119
  Transmission Date: 20160305
  Serious: Yes (Hospitalization, Other)
  Sender: FDA-Public Use
  Company Number: US-BIOGENIDEC-2014BI014402

PATIENT
  Age: 67 Year
  Sex: Female

DRUGS (18)
  1. VITAMIN D [Concomitant]
     Active Substance: CHOLECALCIFEROL
  2. EFFEXOR XR [Concomitant]
     Active Substance: VENLAFAXINE HYDROCHLORIDE
  3. PERCOCET [Concomitant]
     Active Substance: ACETAMINOPHEN\OXYCODONE HYDROCHLORIDE
  4. CITRACAL [Concomitant]
     Active Substance: CALCIUM CITRATE
  5. CLONAZEPAM. [Concomitant]
     Active Substance: CLONAZEPAM
  6. CYMBALTA [Concomitant]
     Active Substance: DULOXETINE HYDROCHLORIDE
  7. ZOLPIDEM [Concomitant]
     Active Substance: ZOLPIDEM\ZOLPIDEM TARTRATE
  8. AVONEX [Suspect]
     Active Substance: INTERFERON BETA-1A
     Indication: MULTIPLE SCLEROSIS
     Route: 030
  9. ESTRADIOL. [Concomitant]
     Active Substance: ESTRADIOL
  10. CALCIUM [Concomitant]
     Active Substance: CALCIUM
  11. ATIVAN [Concomitant]
     Active Substance: LORAZEPAM
  12. SYNTHROID [Concomitant]
     Active Substance: LEVOTHYROXINE SODIUM
  13. AVONEX [Suspect]
     Active Substance: INTERFERON BETA-1A
     Indication: MULTIPLE SCLEROSIS
     Route: 030
     Dates: start: 19981201
  14. ODORLESS GARLIC [Concomitant]
  15. MACROBID [Concomitant]
     Active Substance: NITROFURANTOIN\NITROFURANTOIN MONOHYDRATE
  16. AVONEX [Suspect]
     Active Substance: INTERFERON BETA-1A
     Indication: MULTIPLE SCLEROSIS
     Route: 030
     Dates: end: 20140201
  17. FISH OIL [Concomitant]
     Active Substance: FISH OIL
  18. VITAMIN B [Concomitant]
     Active Substance: VITAMIN B

REACTIONS (14)
  - Pelvic fracture [Recovered/Resolved with Sequelae]
  - Pyrexia [Recovered/Resolved]
  - Visual impairment [Not Recovered/Not Resolved]
  - Bone disorder [Not Recovered/Not Resolved]
  - Weight decreased [Recovered/Resolved]
  - Migraine [Not Recovered/Not Resolved]
  - Blindness unilateral [Recovered/Resolved]
  - Memory impairment [Not Recovered/Not Resolved]
  - Fall [Recovered/Resolved]
  - Urinary cystectomy [Recovered/Resolved]
  - General symptom [Unknown]
  - Multiple sclerosis [Not Recovered/Not Resolved]
  - Stress [Unknown]
  - Rib fracture [Recovered/Resolved]

NARRATIVE: CASE EVENT DATE: 1998
